FAERS Safety Report 5610921-X (Version None)
Quarter: 2008Q1

REPORT INFORMATION
  Report Type: 
  Country: None (occurrence: None)
  Receive Date: 20080201
  Receipt Date: 20080118
  Transmission Date: 20080703
  Serious: Yes (Other)
  Sender: FDA-Public Use
  Company Number: US-BAYER-200714092BCC

PATIENT
  Sex: Female

DRUGS (1)
  1. BAYER RAPID HEADACHE RELIEF [Suspect]
     Indication: HEADACHE
     Route: 048
     Dates: start: 20071201

REACTIONS (8)
  - ANXIETY [None]
  - DIARRHOEA [None]
  - DYSPNOEA [None]
  - HALLUCINATION [None]
  - HEART RATE INCREASED [None]
  - MOTOR DYSFUNCTION [None]
  - SYNCOPE [None]
  - VOMITING [None]
